FAERS Safety Report 10617311 (Version 3)
Quarter: 2015Q1

REPORT INFORMATION
  Report Type: Spontaneous
  Country: US (occurrence: US)
  Receive Date: 20141201
  Receipt Date: 20150106
  Transmission Date: 20150720
  Serious: Yes (Hospitalization)
  Sender: FDA-Public Use
  Company Number: US-BAYER-2014-174896

PATIENT
  Age: 35 Year
  Sex: Female
  Weight: 52 kg

DRUGS (3)
  1. VICOPROFEN [Concomitant]
     Active Substance: HYDROCODONE BITARTRATE\IBUPROFEN
  2. MIRENA [Suspect]
     Active Substance: LEVONORGESTREL
     Indication: CONTRACEPTION
     Dosage: 20 MCG/24HR, CONT
     Route: 015
     Dates: start: 20090415, end: 20140711
  3. MINESTRIN [Concomitant]
     Indication: CONTRACEPTION

REACTIONS (7)
  - Device misuse [None]
  - Pain [None]
  - Emotional distress [None]
  - Injury [None]
  - Uterine perforation [None]
  - Anxiety [None]
  - Device breakage [None]

NARRATIVE: CASE EVENT DATE: 201405
